FAERS Safety Report 8862450 (Version 2)
Quarter: 2012Q4

REPORT INFORMATION
  Report Type: 
  Country: US (occurrence: US)
  Receive Date: 20121026
  Receipt Date: 20121109
  Transmission Date: 20130627
  Serious: Yes (Life-Threatening, Hospitalization, Other)
  Sender: FDA-Public Use
  Company Number: US-009507513-1210USA009825

PATIENT
  Sex: Male

DRUGS (3)
  1. VICTRELIS [Suspect]
     Dosage: 800 mg, q8h
     Route: 048
     Dates: start: 20120919, end: 2012
  2. PEGINTRON [Suspect]
  3. RIBASPHERE [Suspect]

REACTIONS (2)
  - Suicidal ideation [Unknown]
  - Drug abuse [Unknown]
